FAERS Safety Report 7953097-6 (Version None)
Quarter: 2011Q4

REPORT INFORMATION
  Report Type: 
  Country: None (occurrence: None)
  Receive Date: 20111201
  Receipt Date: 20111122
  Transmission Date: 20120403
  Serious: Yes (Hospitalization, Other)
  Sender: FDA-Public Use
  Company Number: US-ELI_LILLY_AND_COMPANY-US201111008416

PATIENT
  Sex: Male

DRUGS (10)
  1. HYDROCHLOROTHIAZIDE [Concomitant]
  2. CALCIUM CITRATE [Concomitant]
  3. VITAMIN D [Concomitant]
  4. FORTEO [Suspect]
     Indication: OSTEOPOROSIS
     Dosage: 20 UG, QD
     Route: 065
     Dates: start: 20110801
  5. ACETAMINOPHEN AND HYDROCODONE BITARTRATE [Concomitant]
  6. FISH OIL [Concomitant]
  7. GINGER [Concomitant]
  8. BONIVA [Concomitant]
  9. TYLENOL                                 /SCH/ [Concomitant]
  10. RESTASIS [Concomitant]

REACTIONS (9)
  - PAIN [None]
  - FEELING ABNORMAL [None]
  - BLOOD SODIUM DECREASED [None]
  - BLOOD CALCIUM DECREASED [None]
  - PAIN IN EXTREMITY [None]
  - BACK PAIN [None]
  - LUNG NEOPLASM [None]
  - MUSCLE SPASMS [None]
  - HISTOPLASMOSIS [None]
